FAERS Safety Report 18497736 (Version 1)
Quarter: 2020Q4

REPORT INFORMATION
  Report Type: Spontaneous
  Country: US (occurrence: US)
  Receive Date: 20201112
  Receipt Date: 20201112
  Transmission Date: 20210114
  Serious: Yes (Other)
  Sender: FDA-Public Use
  Company Number: US-ASTRAZENECA-2020SF46107

PATIENT
  Age: 76 Year
  Sex: Female
  Weight: 79.4 kg

DRUGS (1)
  1. LYNPARZA [Suspect]
     Active Substance: OLAPARIB
     Indication: NEOPLASM MALIGNANT
     Dosage: 300 MG IN THE MORNING AND 300MG IN THE EVENING
     Route: 048
     Dates: start: 201910

REACTIONS (3)
  - Taste disorder [Unknown]
  - Weight decreased [Unknown]
  - Tumour marker increased [Not Recovered/Not Resolved]
